FAERS Safety Report 7050071-1 (Version None)
Quarter: 2010Q4

REPORT INFORMATION
  Report Type: 
  Country: None (occurrence: None)
  Receive Date: 20101018
  Receipt Date: 20101015
  Transmission Date: 20110411
  Serious: Yes (Hospitalization)
  Sender: FDA-Public Use
  Company Number: FR-WYE-H13814310

PATIENT
  Sex: Male
  Weight: 62 kg

DRUGS (13)
  1. NERATINIB [Suspect]
     Indication: ADENOCARCINOMA PANCREAS
     Route: 048
     Dates: start: 20100208, end: 20100222
  2. NERATINIB [Suspect]
     Indication: METASTASIS
  3. ACETAMINOPHEN AND CODEINE PHOSPHATE [Concomitant]
     Indication: PAIN
     Dosage: 2 TAB/DAY IN CASE OF PAIN
     Route: 065
  4. ALPRAZOLAM [Concomitant]
     Route: 065
  5. VALSARTAN [Concomitant]
     Indication: HYPERTENSION
     Dosage: 1 PER DAY
     Route: 065
  6. ACETAMINOPHEN W/ CODEINE [Concomitant]
     Dosage: 1 BOTTLE/DAY
     Route: 065
  7. LOPERAMIDE HYDROCHLORIDE [Concomitant]
     Indication: DIARRHOEA
     Dosage: 1 CAPSULE AFTER EVERY LIQUID STOOL
     Route: 065
  8. OMEPRAZOLE [Concomitant]
     Dosage: 20MG/DAY
     Route: 065
  9. DOMPERIDONE [Concomitant]
     Dosage: 3 TABS/DAY
     Route: 065
  10. NAPROXEN SODIUM [Concomitant]
     Dosage: 500; 1 TAB/DAY
     Route: 065
  11. TEMSIROLIMUS [Suspect]
     Indication: ADENOCARCINOMA PANCREAS
     Route: 042
     Dates: start: 20100208, end: 20100222
  12. TEMSIROLIMUS [Suspect]
     Indication: METASTASIS
  13. ACETORPHAN [Concomitant]
     Dosage: 2 TABS X 3/DAY
     Route: 065

REACTIONS (4)
  - GASTRITIS [None]
  - PROCTITIS ULCERATIVE [None]
  - THROMBOCYTOPENIA [None]
  - URINARY RETENTION [None]
